FAERS Safety Report 6829917-5 (Version None)
Quarter: 2010Q3

REPORT INFORMATION
  Report Type: 
  Country: None (occurrence: None)
  Receive Date: 20100711
  Receipt Date: 20100409
  Transmission Date: 20110219
  Serious: No
  Sender: FDA-Public Use
  Company Number: US-ALLERGAN-1004206US

PATIENT
  Age: 74 Year
  Sex: Female

DRUGS (3)
  1. LATISSE [Suspect]
     Indication: GROWTH OF EYELASHES
     Dosage: 1 GTT, QHS
     Route: 061
     Dates: start: 20091029, end: 20100328
  2. LATISSE [Suspect]
     Dosage: 1 GTT, QHS
     Route: 061
  3. REFRESH TEARS [Concomitant]

REACTIONS (11)
  - DRY EYE [None]
  - ERYTHEMA [None]
  - ERYTHEMA OF EYELID [None]
  - EYE IRRITATION [None]
  - EYE PAIN [None]
  - EYE PRURITUS [None]
  - EYELID OEDEMA [None]
  - HAIR GROWTH ABNORMAL [None]
  - INCORRECT DOSE ADMINISTERED [None]
  - LACRIMATION INCREASED [None]
  - PHOTOSENSITIVITY REACTION [None]
